FAERS Safety Report 23604371 (Version 2)
Quarter: 2024Q2

REPORT INFORMATION
  Report Type: Spontaneous
  Country: US (occurrence: US)
  Receive Date: 20240307
  Receipt Date: 20240403
  Transmission Date: 20240716
  Serious: No
  Sender: FDA-Public Use
  Company Number: US-BRISTOL-MYERS SQUIBB COMPANY-2024-036630

PATIENT
  Age: 72 Year
  Sex: Female

DRUGS (2)
  1. ORENCIA [Suspect]
     Active Substance: ABATACEPT
     Indication: Psoriatic arthropathy
     Route: 058
     Dates: start: 202202
  2. OTEZLA [Concomitant]
     Active Substance: APREMILAST
     Indication: Product used for unknown indication

REACTIONS (6)
  - Injection site bruising [Unknown]
  - Alopecia [Unknown]
  - Dry eye [Unknown]
  - Acne [Unknown]
  - Pain [Unknown]
  - Product dose omission issue [Unknown]
